FAERS Safety Report 5009522-6 (Version None)
Quarter: 2006Q2

REPORT INFORMATION
  Report Type: 
  Country: None (occurrence: None)
  Receive Date: 20060522
  Receipt Date: 20060512
  Transmission Date: 20061013
  Serious: Yes (Hospitalization)
  Sender: FDA-Public Use
  Company Number: S06-USA-01876-01

PATIENT
  Age: 22 Year
  Sex: Female

DRUGS (7)
  1. LEXAPRO [Suspect]
     Indication: ANXIETY
     Dosage: 20 MG QD PO
     Route: 048
     Dates: start: 20050501, end: 20050101
  2. LEXAPRO [Suspect]
     Indication: DEPRESSION
     Dosage: 20 MG QD PO
     Route: 048
     Dates: start: 20050501, end: 20050101
  3. LEXAPRO [Suspect]
     Indication: ANXIETY
     Dates: start: 20060101, end: 20060101
  4. LEXAPRO [Suspect]
     Indication: DEPRESSION
     Dates: start: 20060101, end: 20060101
  5. SSRI [Suspect]
     Indication: ANXIETY
     Dates: start: 20060101, end: 20060101
  6. SSRI [Suspect]
     Indication: DEPRESSION
     Dates: start: 20060101, end: 20060101
  7. TRILEPTAL [Concomitant]

REACTIONS (9)
  - ANGER [None]
  - CONDITION AGGRAVATED [None]
  - DEPRESSION [None]
  - FRUSTRATION [None]
  - INTENTIONAL SELF-INJURY [None]
  - IRRITABILITY [None]
  - NERVOUSNESS [None]
  - SELF-INJURIOUS IDEATION [None]
  - TREMOR [None]
